FAERS Safety Report 5004570-4 (Version None)
Quarter: 2006Q2

REPORT INFORMATION
  Report Type: 
  Country: None (occurrence: None)
  Receive Date: 20060512
  Receipt Date: 20060502
  Transmission Date: 20061013
  Serious: Yes (Hospitalization, Other)
  Sender: FDA-Public Use
  Company Number: 2006034843

PATIENT
  Age: 44 Year
  Sex: Female
  Weight: 47.6277 kg

DRUGS (4)
  1. DETROL LA [Suspect]
     Indication: HYPERTONIC BLADDER
     Dosage: 4 MG (4 MG, 1 IN 1 D), ORAL
     Route: 048
     Dates: start: 20050801
  2. ANTIBIOTICS (ANTIBIOTICS) [Concomitant]
  3. CLONAZEPAM [Concomitant]
  4. LAMICTAL [Concomitant]

REACTIONS (12)
  - ABDOMINAL PAIN UPPER [None]
  - ADHESION [None]
  - CYSTITIS INTERSTITIAL [None]
  - HYSTERECTOMY [None]
  - INSOMNIA [None]
  - INTESTINAL STRANGULATION [None]
  - IRRITABLE BOWEL SYNDROME [None]
  - PAIN [None]
  - POST PROCEDURAL HAEMORRHAGE [None]
  - PRECANCEROUS CELLS PRESENT [None]
  - PROTEIN URINE [None]
  - URINARY RETENTION [None]
